FAERS Safety Report 20964685 (Version 1)
Quarter: 2022Q2

REPORT INFORMATION
  Report Type: Report from Study
  Country: AT (occurrence: AT)
  Receive Date: 20220615
  Receipt Date: 20220615
  Transmission Date: 20220721
  Serious: Yes (Hospitalization)
  Sender: FDA-Public Use
  Company Number: None

PATIENT
  Age: 27 Year
  Sex: Female
  Weight: 115 kg

DRUGS (4)
  1. RINVOQ [Suspect]
     Active Substance: UPADACITINIB
     Indication: Juvenile idiopathic arthritis
     Dosage: ONCE DAILY 15 MG PER ORAL
     Route: 048
     Dates: start: 202106
  2. COMIRNATY [Concomitant]
     Active Substance: TOZINAMERAN
     Indication: COVID-19 immunisation
     Dates: start: 20220104
  3. LYRICA [Concomitant]
     Active Substance: PREGABALIN
     Indication: Juvenile idiopathic arthritis
  4. METHOTREXATE SODIUM [Concomitant]
     Active Substance: METHOTREXATE SODIUM
     Indication: Juvenile idiopathic arthritis

REACTIONS (1)
  - Pulmonary vasculitis [Recovered/Resolved]

NARRATIVE: CASE EVENT DATE: 20220107
